FAERS Safety Report 6914910-4 (Version None)
Quarter: 2010Q3

REPORT INFORMATION
  Report Type: 
  Country: None (occurrence: None)
  Receive Date: 20100809
  Receipt Date: 20100728
  Transmission Date: 20110219
  Serious: Yes (Other)
  Sender: FDA-Public Use
  Company Number: PHHY2010FR49916

PATIENT
  Age: 67 Year
  Sex: Female

DRUGS (5)
  1. ZOMETA [Suspect]
     Dosage: 4 MG, UNK
     Route: 042
     Dates: start: 20080201, end: 20090401
  2. AVASTIN [Concomitant]
     Dosage: 15 MG/KG / 3 WEEKS
     Dates: start: 20070301
  3. XELODA [Concomitant]
     Dosage: 2000 MG, BID
     Dates: start: 20091201
  4. NEO-MERCAZOLE TAB [Concomitant]
     Dosage: UNK
     Dates: start: 20070301
  5. DURAGESIC-100 [Concomitant]
     Dosage: 50 MCG / 72 HOURS
     Dates: start: 20070301

REACTIONS (4)
  - DENTAL OPERATION [None]
  - OSTEITIS [None]
  - OSTEONECROSIS OF JAW [None]
  - TOOTHACHE [None]
